FAERS Safety Report 13553898 (Version 1)
Quarter: 2017Q2

REPORT INFORMATION
  Report Type: Spontaneous
  Country: FR (occurrence: FR)
  Receive Date: 20170517
  Receipt Date: 20170517
  Transmission Date: 20170830
  Serious: Yes (Other)
  Sender: FDA-Public Use
  Company Number: FR-ROCHE-1934886

PATIENT
  Age: 21 Year
  Sex: Female

DRUGS (6)
  1. LOXAPAC [Suspect]
     Active Substance: LOXAPINE SUCCINATE
     Indication: PSYCHOTIC DISORDER
     Dosage: LONG-TERM TREATMENT
     Route: 048
  2. VALIUM [Suspect]
     Active Substance: DIAZEPAM
     Indication: PSYCHOTIC DISORDER
     Dosage: LONG-TERM TREATMENT
     Route: 048
  3. ELIQUIS [Suspect]
     Active Substance: APIXABAN
     Indication: PRODUCT USE IN UNAPPROVED INDICATION
     Route: 048
     Dates: end: 20170323
  4. IMOVANE [Suspect]
     Active Substance: ZOPICLONE
     Indication: PSYCHOTIC DISORDER
     Dosage: LONG-TERM TREATMENT
     Route: 048
  5. ABILIFY [Suspect]
     Active Substance: ARIPIPRAZOLE
     Indication: PSYCHOTIC DISORDER
     Dosage: LONG-TERM TREATMENT
     Route: 048
  6. DEPAMIDE [Suspect]
     Active Substance: VALPROMIDE
     Indication: PSYCHOTIC DISORDER
     Dosage: LONG-TERM TREATMENT
     Route: 048
     Dates: end: 20170313

REACTIONS (2)
  - Maternal exposure during pregnancy [Unknown]
  - Ectopic pregnancy [Unknown]

NARRATIVE: CASE EVENT DATE: 201704
